FAERS Safety Report 8320820-0 (Version None)
Quarter: 2012Q2

REPORT INFORMATION
  Report Type: 
  Country: None (occurrence: None)
  Receive Date: 20120430
  Receipt Date: 20120419
  Transmission Date: 20120825
  Serious: Yes (Other)
  Sender: FDA-Public Use
  Company Number: PHHY2011BR107916

PATIENT
  Age: 50 Year
  Sex: Male

DRUGS (4)
  1. GLEEVEC [Suspect]
     Dosage: 400 MG, DAILY
  2. ANTIHYPERTENSIVE DRUGS [Concomitant]
  3. GLEEVEC [Suspect]
     Indication: CHRONIC MYELOID LEUKAEMIA
     Dosage: 400 MG, DAILY
  4. GLEEVEC [Suspect]
     Dosage: 400 MG EVERY OTHER DAY

REACTIONS (5)
  - THROMBOCYTOPENIA [None]
  - HAEMATOTOXICITY [None]
  - DRUG INTOLERANCE [None]
  - DRUG RESISTANCE [None]
  - PLATELET COUNT DECREASED [None]
